FAERS Safety Report 7041550-1 (Version None)
Quarter: 2010Q4

REPORT INFORMATION
  Report Type: 
  Country: None (occurrence: None)
  Receive Date: 20101013
  Receipt Date: 20100720
  Transmission Date: 20110411
  Serious: No
  Sender: FDA-Public Use
  Company Number: US-ASTRAZENECA-2010SE33816

PATIENT
  Age: 84 Year
  Sex: Female
  Weight: 43.5 kg

DRUGS (7)
  1. SYMBICORT [Suspect]
     Indication: CHRONIC OBSTRUCTIVE PULMONARY DISEASE
     Dosage: 320 MCG
     Route: 055
     Dates: start: 20080101
  2. LASIX [Concomitant]
  3. COUMADIN [Concomitant]
  4. NEXIUM [Concomitant]
  5. LOTREL [Concomitant]
  6. VITAMIN K TAB [Concomitant]
  7. CARVEDILOL [Concomitant]

REACTIONS (2)
  - DRUG DOSE OMISSION [None]
  - DYSPNOEA [None]
